FAERS Safety Report 4918840-9 (Version None)
Quarter: 2006Q1

REPORT INFORMATION
  Report Type: 
  Country: None (occurrence: None)
  Receive Date: 20060221
  Receipt Date: 20060221
  Transmission Date: 20060701
  Serious: Yes (Life-Threatening)
  Sender: FDA-Public Use
  Company Number: None

PATIENT
  Age: 63 Year
  Sex: Female

DRUGS (7)
  1. ETOMIDATE [Suspect]
     Indication: ANAESTHESIA
     Dosage: 0.3 MG/KG  ONCE  IV
     Route: 042
     Dates: start: 20041207, end: 20041207
  2. ETOMIDATE [Suspect]
     Indication: CORONARY ARTERY SURGERY
     Dosage: 0.3 MG/KG  ONCE  IV
     Route: 042
     Dates: start: 20041207, end: 20041207
  3. HEPARIN [Concomitant]
  4. ASPIRIN [Concomitant]
  5. UNSPECIFIED BETA-BLOCKER [Concomitant]
  6. UNSPECIFIED ACE-INHIBITOR [Concomitant]
  7. UNSPECIFIED STATIN -HMG-COA- AGENT [Concomitant]

REACTIONS (4)
  - ATRIOVENTRICULAR BLOCK COMPLETE [None]
  - CARDIAC ARREST [None]
  - HYPOTENSION [None]
  - PROCEDURAL COMPLICATION [None]
